FAERS Safety Report 19773360 (Version 1)
Quarter: 2021Q3

REPORT INFORMATION
  Report Type: Spontaneous
  Country: CA (occurrence: CA)
  Receive Date: 20210901
  Receipt Date: 20210901
  Transmission Date: 20211014
  Serious: Yes (Other)
  Sender: FDA-Public Use
  Company Number: CA-MYLANLABS-2021M1057231

PATIENT
  Age: 67 Year
  Sex: Female

DRUGS (11)
  1. ONDANSETRON HYDROCHLORIDE DIHYDRATE [Suspect]
     Active Substance: ONDANSETRON HYDROCHLORIDE
     Indication: NAUSEA
  2. AMLODIPINE [Concomitant]
     Active Substance: AMLODIPINE BESYLATE
     Indication: BLOOD PRESSURE MANAGEMENT
     Dosage: UNK
  3. DEXAMETHASONE. [Concomitant]
     Active Substance: DEXAMETHASONE
     Indication: NAUSEA
     Dosage: UNK
  4. ONDANSETRON HYDROCHLORIDE DIHYDRATE [Suspect]
     Active Substance: ONDANSETRON HYDROCHLORIDE
     Indication: PROPHYLAXIS
     Dosage: UNK
  5. ONDANSETRON HYDROCHLORIDE DIHYDRATE [Suspect]
     Active Substance: ONDANSETRON HYDROCHLORIDE
     Indication: NEOPLASM MALIGNANT
     Dosage: UNK
  6. PIPERACILLIN AND TAZOBACTAM [Concomitant]
     Active Substance: PIPERACILLIN SODIUM\TAZOBACTAM SODIUM
     Dosage: UNK
  7. ROSUVASTATIN. [Concomitant]
     Active Substance: ROSUVASTATIN
     Indication: BLOOD CHOLESTEROL ABNORMAL
     Dosage: UNK
  8. MYLAN?ONDANSETRON [Suspect]
     Active Substance: ONDANSETRON
     Indication: NAUSEA
  9. JARDIANCE [Concomitant]
     Active Substance: EMPAGLIFLOZIN
     Indication: DIABETES MELLITUS
     Dosage: UNK
  10. MYLAN?ONDANSETRON [Suspect]
     Active Substance: ONDANSETRON
     Indication: PROPHYLAXIS
     Dosage: 8 MILLIGRAM
  11. MYLAN?ONDANSETRON [Suspect]
     Active Substance: ONDANSETRON
     Indication: NEOPLASM MALIGNANT

REACTIONS (3)
  - Product storage error [Recovered/Resolved]
  - No adverse event [Recovered/Resolved]
  - Drug ineffective [Recovered/Resolved]
